FAERS Safety Report 6361596-6 (Version None)
Quarter: 2009Q3

REPORT INFORMATION
  Report Type: 
  Country: None (occurrence: None)
  Receive Date: 20090817
  Receipt Date: 20081202
  Transmission Date: 20100115
  Serious: No
  Sender: FDA-Public Use
  Company Number: 20085649

PATIENT
  Sex: Male

DRUGS (2)
  1. LIORESAL [Suspect]
     Indication: MUSCLE SPASTICITY
     Dosage: MCG, DAILY, INTRATHECAL
     Route: 037
  2. ORAL BACLOFEN [Concomitant]

REACTIONS (3)
  - DRUG INEFFECTIVE [None]
  - HYPERTONIA [None]
  - SOMNOLENCE [None]
